FAERS Safety Report 6808977-1 (Version None)
Quarter: 2010Q2

REPORT INFORMATION
  Report Type: 
  Country: None (occurrence: None)
  Receive Date: 20100630
  Receipt Date: 20091117
  Transmission Date: 20101027
  Serious: No
  Sender: FDA-Public Use
  Company Number: US-PFIZER INC-2009270668

PATIENT
  Sex: Female
  Weight: 97.522 kg

DRUGS (1)
  1. ALPRAZOLAM [Suspect]
     Dosage: 0.25 MG, 3X/DAY

REACTIONS (4)
  - COELIAC DISEASE [None]
  - HYPERSENSITIVITY [None]
  - PRURITUS [None]
  - RASH [None]
